FAERS Safety Report 5068945-X (Version None)
Quarter: 2006Q3

REPORT INFORMATION
  Report Type: 
  Country: None (occurrence: None)
  Receive Date: 20060802
  Receipt Date: 20060616
  Transmission Date: 20061208
  Serious: Yes (Hospitalization, Other)
  Sender: FDA-Public Use
  Company Number: US-BRISTOL-MYERS SQUIBB COMPANY-13415252

PATIENT
  Age: 22 Year
  Sex: Female

DRUGS (1)
  1. ABILIFY [Suspect]
     Indication: PSYCHOTIC DISORDER
     Route: 048
     Dates: start: 20060509, end: 20060524

REACTIONS (2)
  - MYDRIASIS [None]
  - NEUROLEPTIC MALIGNANT SYNDROME [None]
